FAERS Safety Report 4418338-0 (Version None)
Quarter: 2004Q3

REPORT INFORMATION
  Report Type: 
  Country: None (occurrence: None)
  Receive Date: 20040809
  Receipt Date: 20040210
  Transmission Date: 20050211
  Serious: No
  Sender: FDA-Public Use
  Company Number: 361814

PATIENT
  Sex: Female

DRUGS (2)
  1. PAXIL [Suspect]
     Indication: ILL-DEFINED DISORDER
     Dosage: 25MG UNKNOWN
     Route: 048
  2. COREG [Suspect]
     Indication: ILL-DEFINED DISORDER
     Dosage: 1.041MG UNKNOWN
     Route: 065

REACTIONS (9)
  - AGITATION [None]
  - BURNING SENSATION [None]
  - DIZZINESS [None]
  - DRUG INTERACTION [None]
  - FEELING COLD [None]
  - HEADACHE [None]
  - HYPERHIDROSIS [None]
  - PARAESTHESIA [None]
  - SENSORY DISTURBANCE [None]
